FAERS Safety Report 13913290 (Version 1)
Quarter: 2017Q3

REPORT INFORMATION
  Report Type: Spontaneous
  Country: US (occurrence: US)
  Receive Date: 20170828
  Receipt Date: 20170828
  Transmission Date: 20171127
  Serious: No
  Sender: FDA-Public Use
  Company Number: US-ROCHE-1125483

PATIENT
  Sex: Female
  Weight: 15 kg

DRUGS (1)
  1. NUTROPIN [Suspect]
     Active Substance: SOMATROPIN
     Indication: TURNER^S SYNDROME
     Route: 065
     Dates: start: 19991008

REACTIONS (3)
  - Headache [Unknown]
  - Genital erythema [Unknown]
  - Abdominal discomfort [Unknown]
